FAERS Safety Report 7885271-1 (Version None)
Quarter: 2011Q4

REPORT INFORMATION
  Report Type: 
  Country: None (occurrence: None)
  Receive Date: 20111102
  Receipt Date: 20111027
  Transmission Date: 20120403
  Serious: Yes (Hospitalization)
  Sender: FDA-Public Use
  Company Number: CHPA2011US15063

PATIENT
  Age: 51 Year
  Sex: Female

DRUGS (1)
  1. NICOTINE [Suspect]
     Indication: SMOKING CESSATION THERAPY
     Dosage: 14 MG, QD
     Route: 062
     Dates: start: 20111016, end: 20111021

REACTIONS (5)
  - MALAISE [None]
  - CHRONIC OBSTRUCTIVE PULMONARY DISEASE [None]
  - DRUG EFFECT INCREASED [None]
  - INSOMNIA [None]
  - DYSPNOEA [None]
